FAERS Safety Report 8847277 (Version 2)
Quarter: 2012Q4

REPORT INFORMATION
  Report Type: 
  Country: US (occurrence: US)
  Receive Date: 20121018
  Receipt Date: 20121128
  Transmission Date: 20130627
  Serious: Yes (Other)
  Sender: FDA-Public Use
  Company Number: US-PFIZER INC-2012259058

PATIENT
  Age: 56 Year
  Sex: Female
  Weight: 62.6 kg

DRUGS (6)
  1. EFFEXOR XR [Suspect]
     Indication: DEPRESSION
     Dosage: 37.5 mg, daily
     Route: 048
     Dates: start: 20120904, end: 20121015
  2. EFFEXOR XR [Suspect]
     Indication: LOSS OF ENERGY
  3. PERCOCET [Suspect]
     Indication: PAIN
     Dosage: OXYCODONE 5 mg / PARACETAMOL / 325 mg, 3x/day
     Dates: start: 20121015
  4. PERCOCET [Suspect]
     Indication: CHEST DISCOMFORT
  5. FLAGYL [Concomitant]
     Indication: STOMACH DISCOMFORT
     Dosage: 500 mg, 3x/day
     Dates: end: 20121015
  6. VITAMIN D [Concomitant]
     Dosage: 2000 IU, UNK
     Dates: end: 20121015

REACTIONS (8)
  - Palpitations [Not Recovered/Not Resolved]
  - Activities of daily living impaired [Unknown]
  - Dyspnoea [Not Recovered/Not Resolved]
  - Chest discomfort [Not Recovered/Not Resolved]
  - Pain [Not Recovered/Not Resolved]
  - Bronchitis [Not Recovered/Not Resolved]
  - Migraine [Not Recovered/Not Resolved]
  - Drug ineffective [Unknown]
